FAERS Safety Report 7536256-6 (Version None)
Quarter: 2011Q2

REPORT INFORMATION
  Report Type: 
  Country: None (occurrence: None)
  Receive Date: 20110602
  Receipt Date: 20110519
  Transmission Date: 20111010
  Serious: Yes (Hospitalization, Other)
  Sender: FDA-Public Use
  Company Number: JP-2011-10668

PATIENT
  Age: 61 Year
  Sex: Male

DRUGS (46)
  1. SAMSCA [Suspect]
     Indication: CARDIAC FAILURE CHRONIC
     Dosage: 7.5 MG MILLIGRAM(S), QAM, ORAL
     Route: 048
     Dates: start: 20110317, end: 20110416
  2. DOBUTREX [Concomitant]
  3. SOLDEM 1 (INITIATION MEDIUM) [Concomitant]
  4. ALLOPURINOL [Concomitant]
  5. FAMOTIDINE [Concomitant]
  6. APRESOLINE [Concomitant]
  7. UNASYN (SULTAMICILLIN TOSILATE HYDRATE) [Concomitant]
  8. CLOBETASOL PROPIONATE [Concomitant]
  9. LASIX [Concomitant]
  10. CLONAZEPAM [Concomitant]
  11. SIGMART (NICORANDIL) [Concomitant]
  12. MUCOSOLVAN (AMBROXOL HYDROCHLORIDE) [Concomitant]
  13. DEPAS (ETIZOLAM) [Concomitant]
  14. HYDROCORTISONE SODIUM SUCCINATE [Concomitant]
  15. AZUNOL (DIMETHYL ISOPROPYLAZULENE) [Concomitant]
  16. PREDNISOLONE (PREDNISOLONE) TABLET, I MG [Concomitant]
  17. METHYCOBAL (MECOBALAMIN) [Concomitant]
  18. ARTIST (CARVEDILOL) [Concomitant]
  19. HIRUDOID (HEPARINOID) [Concomitant]
  20. NERISONE [Concomitant]
  21. PURSENNID (SENNOSIDE) [Concomitant]
  22. SINGULAIR [Concomitant]
  23. BFLUID (MIXED AMINO ACID_CARBOHYDRATE_ELECTROLYTE_VITAMIN COMBINE) [Concomitant]
  24. CELESTAMINE TAB [Concomitant]
  25. PREDOPA (DOPAMINE HYDROCHLORIDE) INJECTION [Concomitant]
  26. RHYTHMY (RILMAZAFONE HYDROCHLRODIE HYDRATE) [Concomitant]
  27. LASIX [Concomitant]
  28. ALESION (EPINASTINE HYDROCHLORIDE) [Concomitant]
  29. MAGMITT (MAGNESIUM OXIDE) [Concomitant]
  30. THYRADIN S (LEVOTHYROXINE SODIUM HYDRATE) [Concomitant]
  31. ALDACTONE [Concomitant]
  32. SODIUM ALGINATE CALCIUM GLUCONATE INJ [Concomitant]
  33. WARFARIN (WARFARIN POTASSIUM) [Concomitant]
  34. CERCINE (DIAZEPAM) [Concomitant]
  35. NEO-MINOPHAGEN C (MONOAMMONIUM GLYCYRRHIZINATE_GLYCINE_L-CYSTEINIE COM [Concomitant]
  36. THERADIA (SULFADIAZINE) [Concomitant]
  37. HIRUDOID (HEPARINOID) [Concomitant]
  38. URSO 250 [Concomitant]
  39. ISOSORBIDE DINITRATE [Concomitant]
  40. PIMOBENDAN (PIMOBENDAN) [Concomitant]
  41. AMIODARONE HCL [Concomitant]
  42. ADOAIR (SALMETEROL XINAFOATE_FLUTICASONE PROPIONATE) [Concomitant]
  43. RINDERON-VG (BETAMETHASONE VALERATE_GENTAMICIN) [Concomitant]
  44. BISOLVON (BROMHEXINE HYDROCHLORIDE) [Concomitant]
  45. ANTEBATE: OINTMENT (BETAMETHASONE BUTYRATE PROPIONATE) [Concomitant]
  46. RULID (ROXITHROMYCIN) [Concomitant]

REACTIONS (1)
  - RASH [None]
